FAERS Safety Report 18298955 (Version 1)
Quarter: 2020Q3

REPORT INFORMATION
  Report Type: Spontaneous
  Country: US (occurrence: US)
  Receive Date: 20200922
  Receipt Date: 20200922
  Transmission Date: 20201103
  Serious: Yes (Death, Other)
  Sender: FDA-Public Use
  Company Number: US-GILEAD-2020-0495909

PATIENT
  Age: 65 Year
  Sex: Male
  Weight: 80.4 kg

DRUGS (21)
  1. ENOXAPARIN [Concomitant]
     Active Substance: ENOXAPARIN
     Dosage: 40 MG, QD
     Route: 058
     Dates: start: 20200707, end: 20200802
  2. ZINC SULFATE. [Concomitant]
     Active Substance: ZINC SULFATE
     Dosage: 220 MG, BID
     Route: 048
     Dates: start: 20200707, end: 20200723
  3. HEPARIN [Concomitant]
     Active Substance: HEPARIN SODIUM
     Dosage: 5000 UNITS
     Route: 058
     Dates: start: 20200817, end: 20200902
  4. METOPROLOL TARTRATE. [Concomitant]
     Active Substance: METOPROLOL TARTRATE
     Dosage: 25 MG
     Route: 048
     Dates: start: 20200803, end: 20200814
  5. ASPIRIN 81 [Concomitant]
     Active Substance: ASPIRIN
     Dosage: 81 MG, QD
     Route: 048
     Dates: start: 20200803, end: 20200902
  6. ASCORBIC ACID. [Concomitant]
     Active Substance: ASCORBIC ACID
     Dosage: 1000 MG, BID
     Route: 048
     Dates: start: 20200707, end: 20200809
  7. VITAMIN D3 [Concomitant]
     Active Substance: CHOLECALCIFEROL
     Dosage: 800 UNITS
     Route: 048
     Dates: start: 20200719, end: 20200818
  8. AMIODARONE [Concomitant]
     Active Substance: AMIODARONE
     Dosage: 200 MG
     Route: 048
     Dates: start: 20200727, end: 20200902
  9. ATORVASTATIN [Concomitant]
     Active Substance: ATORVASTATIN
     Dosage: 20 MG, QD
     Route: 048
     Dates: start: 20200710, end: 20200809
  10. REMDESIVIR. [Suspect]
     Active Substance: REMDESIVIR
     Indication: COVID-19 PNEUMONIA
     Dosage: 200 MG, ONCE
     Route: 042
     Dates: start: 20200707, end: 20200707
  11. REMDESIVIR. [Suspect]
     Active Substance: REMDESIVIR
     Dosage: 100 MG, QD
     Route: 042
     Dates: start: 20200708, end: 20200711
  12. DEXAMETHASONE. [Concomitant]
     Active Substance: DEXAMETHASONE
     Dosage: 6 MG, QD
     Route: 042
     Dates: start: 20200706, end: 20200723
  13. ENOXAPARIN [Concomitant]
     Active Substance: ENOXAPARIN
     Dosage: 80 MG, BID
     Route: 058
     Dates: start: 20200803, end: 20200814
  14. MEROPENEM. [Concomitant]
     Active Substance: MEROPENEM
     Dosage: UNK
     Route: 042
     Dates: start: 20200806, end: 20200902
  15. METHYLPREDNISOLONE. [Concomitant]
     Active Substance: METHYLPREDNISOLONE
     Dosage: 40 MG, QD
     Route: 042
     Dates: start: 20200824, end: 20200902
  16. MELATONIN [Concomitant]
     Active Substance: MELATONIN
     Dosage: 9 MG
     Route: 048
     Dates: start: 20200710, end: 20200721
  17. CEFTRIAXONE. [Concomitant]
     Active Substance: CEFTRIAXONE
     Dosage: 1 G, QD
     Route: 042
     Dates: start: 20200811, end: 20200825
  18. LISINOPRIL. [Concomitant]
     Active Substance: LISINOPRIL
     Dosage: 10 MG, QD
     Route: 048
     Dates: start: 20200707, end: 20200803
  19. MICAFUNGIN. [Concomitant]
     Active Substance: MICAFUNGIN SODIUM
     Dosage: 100 MG, QD
     Route: 042
     Dates: start: 20200719, end: 20200810
  20. PIPERACILLIN AND TAZOBACTAM [Concomitant]
     Active Substance: PIPERACILLIN SODIUM\TAZOBACTAM SODIUM
     Dosage: 3.375 G, Q84HR
     Route: 042
     Dates: start: 20200725, end: 20200806
  21. VANCOMYCIN [Concomitant]
     Active Substance: VANCOMYCIN
     Dosage: UNK
     Dates: start: 20200713, end: 20200722

REACTIONS (9)
  - Acute kidney injury [Fatal]
  - Malnutrition [Unknown]
  - Cardiac arrest [Fatal]
  - Organ failure [Fatal]
  - Anaemia [Unknown]
  - Sepsis [Fatal]
  - Renal tubular necrosis [Fatal]
  - Acute respiratory distress syndrome [Fatal]
  - Pneumothorax [Fatal]

NARRATIVE: CASE EVENT DATE: 20200902
